FAERS Safety Report 9768136 (Version 4)
Quarter: 2014Q4

REPORT INFORMATION
  Report Type: Report from Study
  Country: TR (occurrence: TR)
  Receive Date: 20131217
  Receipt Date: 20141206
  Transmission Date: 20150529
  Serious: Yes (Hospitalization)
  Sender: FDA-Public Use
  Company Number: TR-ABBVIE-13P-161-1180549-00

PATIENT
  Age: 62 Year
  Sex: Female
  Weight: 95 kg

DRUGS (3)
  1. HUMIRA [Suspect]
     Active Substance: ADALIMUMAB
     Indication: RHEUMATOID ARTHRITIS
     Route: 058
     Dates: start: 20100922, end: 20131209
  2. METOPROLOL [Concomitant]
     Active Substance: METOPROLOL
     Indication: ANTIDEPRESSANT THERAPY
     Route: 048
  3. DICLOFENAC [Concomitant]
     Active Substance: DICLOFENAC
     Indication: ANALGESIC THERAPY
     Route: 048

REACTIONS (2)
  - Joint swelling [Recovered/Resolved]
  - Leiomyosarcoma [Recovered/Resolved]

NARRATIVE: CASE EVENT DATE: 201311
